FAERS Safety Report 15953307 (Version 2)
Quarter: 2019Q1

REPORT INFORMATION
  Report Type: Report from Study
  Country: None (occurrence: US)
  Receive Date: 20190212
  Receipt Date: 20190312
  Transmission Date: 20190417
  Serious: Yes (Other)
  Sender: FDA-Public Use
  Company Number: US-ABBVIE-19K-163-2658360-00

PATIENT
  Sex: Female
  Weight: 90.8 kg

DRUGS (2)
  1. HUMIRA [Suspect]
     Active Substance: ADALIMUMAB
     Indication: PSORIATIC ARTHROPATHY
     Route: 058
  2. HUMIRA [Suspect]
     Active Substance: ADALIMUMAB
     Indication: PSORIASIS
     Dosage: FROM 1-2 MONTHS OUT OF MEDICATION
     Route: 058
     Dates: start: 2013, end: 201812

REACTIONS (9)
  - Cataract [Unknown]
  - Blood glucose abnormal [Unknown]
  - Pain [Unknown]
  - Psoriasis [Unknown]
  - Visual impairment [Unknown]
  - Blood pressure abnormal [Unknown]
  - Device issue [Unknown]
  - Sensitivity to weather change [Unknown]
  - Cataract operation complication [Unknown]
